FAERS Safety Report 9494724 (Version 1)
Quarter: 2013Q3

REPORT INFORMATION
  Report Type: Spontaneous
  Country: FR (occurrence: FR)
  Receive Date: 20130903
  Receipt Date: 20130903
  Transmission Date: 20140515
  Serious: Yes (Death)
  Sender: FDA-Public Use
  Company Number: FR-PFIZER INC-2013251625

PATIENT
  Age: 91 Year
  Sex: Female

DRUGS (8)
  1. AMLOR [Suspect]
     Indication: HYPERTENSION
     Dosage: 5 MG, DAILY
     Route: 048
     Dates: start: 20130120, end: 20130125
  2. AMLOR [Suspect]
     Dosage: 10 MG, DAILY
     Route: 048
     Dates: start: 20130126, end: 20130129
  3. AMOXICILLIN PANPHARMA [Suspect]
     Indication: INFECTION
     Dosage: 3 G, 3X/DAY
     Route: 042
     Dates: start: 20130122, end: 20130129
  4. LOVENOX [Suspect]
     Indication: PROPHYLAXIS
     Dosage: 1 DF, 1X/DAY
     Route: 058
     Dates: start: 20130115, end: 20130129
  5. MOVICOL [Suspect]
     Indication: CONSTIPATION
     Dosage: UNK
     Route: 048
     Dates: start: 20130120, end: 20130129
  6. DOLIPRANE [Suspect]
     Indication: PAIN
     Dosage: 1000 MG, 4X/DAY
     Route: 048
     Dates: start: 20130121, end: 20130129
  7. FLAGYL [Suspect]
     Indication: VAGINAL DISCHARGE
     Dosage: 500 MG, 1X/DAY
     Route: 067
     Dates: start: 20130118, end: 20130127
  8. CEFTRIAXONE [Concomitant]
     Dosage: 2 G, 2X/DAY
     Dates: start: 20130114, end: 20130121

REACTIONS (1)
  - Tubulointerstitial nephritis [Fatal]
